FAERS Safety Report 9222468 (Version 1)
Quarter: 2013Q2

REPORT INFORMATION
  Report Type: Spontaneous
  Country: GB (occurrence: GB)
  Receive Date: 20130410
  Receipt Date: 20130410
  Transmission Date: 20140414
  Serious: Yes (Other)
  Sender: FDA-Public Use
  Company Number: GB-AMGEN-GBRSP2013024830

PATIENT
  Sex: Female

DRUGS (6)
  1. ENBREL [Suspect]
     Indication: PRODUCT USED FOR UNKNOWN INDICATION
     Dosage: UNK
     Dates: start: 201111
  2. LYRICA [Suspect]
     Dosage: 75 MG, 2X/DAY
  3. LANSOPRAZOLE [Suspect]
     Dosage: DAILY
  4. QUINORIC [Suspect]
     Dosage: 1 DOSE FORM TWICE DAILY
  5. FOLIC ACID [Suspect]
     Dosage: 5 MG, SIX DAYS PER WEEK
  6. METHOTREXATE [Concomitant]
     Dosage: 25 MG, UNK
     Route: 058

REACTIONS (6)
  - Arthritis [Recovering/Resolving]
  - Nervous system disorder [Recovering/Resolving]
  - Gastrointestinal motility disorder [Recovering/Resolving]
  - Inflammation [Recovering/Resolving]
  - Asthenia [Recovering/Resolving]
  - Substance-induced psychotic disorder [Recovering/Resolving]
